FAERS Safety Report 9038977 (Version 1)
Quarter: 2013Q1

REPORT INFORMATION
  Report Type: Spontaneous
  Country: US (occurrence: None)
  Receive Date: 20130123
  Receipt Date: 20130123
  Transmission Date: 20140127
  Serious: No
  Sender: FDA-Public Use
  Company Number: None

PATIENT
  Sex: 0

DRUGS (1)
  1. NEXIUM [Suspect]

REACTIONS (8)
  - Paraesthesia [None]
  - Burning sensation [None]
  - Muscle spasms [None]
  - Pain in extremity [None]
  - Dyskinesia [None]
  - Breast pain [None]
  - Headache [None]
  - Chest pain [None]
